FAERS Safety Report 10160508 (Version 2)
Quarter: 2014Q2

REPORT INFORMATION
  Report Type: Spontaneous
  Country: GB (occurrence: GB)
  Receive Date: 20140508
  Receipt Date: 20140618
  Transmission Date: 20141212
  Serious: Yes (Other)
  Sender: FDA-Public Use
  Company Number: GB-UCBSA-120317

PATIENT
  Age: 84 Year
  Sex: Male
  Weight: 102 kg

DRUGS (7)
  1. CO-CODAMOL [Suspect]
     Indication: MUSCULOSKELETAL PAIN
     Dosage: 16 TABLETS, 1-2 DOSES PRN.
  2. AMLODIPINE [Concomitant]
  3. GLIMEPIRIDE [Concomitant]
  4. LOSARTAN [Concomitant]
  5. METFORMIN [Concomitant]
  6. SIMVASTATIN [Concomitant]
  7. SOTALOL [Concomitant]

REACTIONS (2)
  - Accidental overdose [Unknown]
  - Somnolence [Recovered/Resolved]
